FAERS Safety Report 20545647 (Version 1)
Quarter: 2022Q1

REPORT INFORMATION
  Report Type: Report from Study
  Country: MX (occurrence: MX)
  Receive Date: 20220303
  Receipt Date: 20220303
  Transmission Date: 20220424
  Serious: Yes (Life-Threatening)
  Sender: FDA-Public Use
  Company Number: MX-NOVARTISPH-NVSC2022MX050318

PATIENT
  Sex: Female
  Weight: 64 kg

DRUGS (2)
  1. EXFORGE [Suspect]
     Active Substance: AMLODIPINE BESYLATE\VALSARTAN
     Indication: Hypertension
     Dosage: 1 DOSAGE FORM OF 5/160 MG, QD
     Route: 048
     Dates: start: 2012
  2. EXFORGE [Suspect]
     Active Substance: AMLODIPINE BESYLATE\VALSARTAN
     Dosage: 0.5 DOSAGE FORM
     Route: 065
     Dates: start: 202111

REACTIONS (5)
  - Cardiac arrest [Unknown]
  - Discomfort [Recovering/Resolving]
  - Dizziness [Recovering/Resolving]
  - Hypotension [Recovered/Resolved]
  - Off label use [Recovered/Resolved]

NARRATIVE: CASE EVENT DATE: 20210101
